FAERS Safety Report 6035812-4 (Version None)
Quarter: 2009Q1

REPORT INFORMATION
  Report Type: 
  Country: None (occurrence: None)
  Receive Date: 20090113
  Receipt Date: 20090108
  Transmission Date: 20090719
  Serious: Yes (Other)
  Sender: FDA-Public Use
  Company Number: JP-AVENTIS-200910043JP

PATIENT
  Age: 54 Year
  Sex: Male

DRUGS (4)
  1. AMARYL [Suspect]
     Indication: TYPE 2 DIABETES MELLITUS
     Route: 048
     Dates: start: 20060801
  2. AMARYL [Suspect]
     Route: 048
     Dates: start: 20080401
  3. BEZATOL [Suspect]
     Dosage: DOSE: 200 MG
     Route: 048
     Dates: start: 20051101, end: 20060701
  4. FASTIC [Concomitant]
     Dosage: DOSE QUANTITY: 90
     Route: 048
     Dates: start: 20040201, end: 20060701

REACTIONS (2)
  - BLOOD CREATINE PHOSPHOKINASE INCREASED [None]
  - MUSCLE SPASMS [None]
